FAERS Safety Report 9552708 (Version 1)
Quarter: 2013Q3

REPORT INFORMATION
  Report Type: Spontaneous
  Country: US (occurrence: US)
  Receive Date: 20130925
  Receipt Date: 20130925
  Transmission Date: 20140515
  Serious: No
  Sender: FDA-Public Use
  Company Number: US-PURDUE-USA-2012-0094437

PATIENT
  Sex: Male

DRUGS (2)
  1. MORPHINE SULFATE (SIMILAR TO NDA 19-516) [Suspect]
     Indication: SCIATICA
     Dosage: 10 MG, UNK
     Route: 048
     Dates: start: 20121010
  2. MORPHINE SULFATE (SIMILAR TO NDA 19-516) [Suspect]
     Dosage: 30 MG, UNK
     Route: 048
     Dates: start: 20121010

REACTIONS (3)
  - Somnolence [Unknown]
  - Dizziness [Unknown]
  - Hypersomnia [Unknown]
